FAERS Safety Report 26172811 (Version 1)
Quarter: 2025Q4

REPORT INFORMATION
  Report Type: Spontaneous
  Country: US (occurrence: None)
  Receive Date: 20251218
  Receipt Date: 20251218
  Transmission Date: 20260117
  Serious: Yes (Other)
  Sender: APOTEX
  Company Number: US-APOTEX-2025AP034410

PATIENT
  Age: 50 Year
  Sex: Male

DRUGS (3)
  1. OMEPRAZOLE [Suspect]
     Active Substance: OMEPRAZOLE
     Indication: Haematemesis
     Dosage: UNK
     Route: 065
  2. CEFTRIAXONE [Concomitant]
     Active Substance: CEFTRIAXONE
     Indication: Haematemesis
     Dosage: UNK
     Route: 065
  3. OCTREOTIDE [Concomitant]
     Active Substance: OCTREOTIDE
     Indication: Haematemesis
     Dosage: UNK
     Route: 065

REACTIONS (2)
  - Oesophageal candidiasis [Recovered/Resolved]
  - Condition aggravated [Recovered/Resolved]
